FAERS Safety Report 13898035 (Version 1)
Quarter: 2017Q3

REPORT INFORMATION
  Report Type: Spontaneous
  Country: US (occurrence: None)
  Receive Date: 20170823
  Receipt Date: 20170823
  Transmission Date: 20171127
  Serious: Yes (Hospitalization)
  Sender: FDA-Public Use
  Company Number: None

PATIENT
  Age: 60 Year
  Sex: Female
  Weight: 59.9 kg

DRUGS (1)
  1. XELODA [Suspect]
     Active Substance: CAPECITABINE
     Dates: end: 20170818

REACTIONS (4)
  - Diarrhoea [None]
  - Fatigue [None]
  - Petechiae [None]
  - Platelet count decreased [None]

NARRATIVE: CASE EVENT DATE: 20170818
